FAERS Safety Report 4723331-4 (Version None)
Quarter: 2005Q3

REPORT INFORMATION
  Report Type: 
  Country: None (occurrence: None)
  Receive Date: 20050725
  Receipt Date: 20050712
  Transmission Date: 20060218
  Serious: Yes (Other)
  Sender: FDA-Public Use
  Company Number: US-BRACCO-BDI-007355

PATIENT
  Sex: Female

DRUGS (3)
  1. ISOVUE [Suspect]
     Route: 042
     Dates: start: 20050708, end: 20050708
  2. ISOVUE [Suspect]
     Route: 042
     Dates: start: 20050708, end: 20050708
  3. GASTROGRAFIN [Concomitant]
     Route: 048
     Dates: start: 20050708, end: 20050708

REACTIONS (3)
  - HYPOAESTHESIA [None]
  - SNEEZING [None]
  - URTICARIA [None]
